FAERS Safety Report 5501327-2 (Version None)
Quarter: 2007Q4

REPORT INFORMATION
  Report Type: 
  Country: None (occurrence: None)
  Receive Date: 20071029
  Receipt Date: 20071020
  Transmission Date: 20080405
  Serious: Yes (Hospitalization)
  Sender: FDA-Public Use
  Company Number: US-GENENTECH-250137

PATIENT
  Age: 65 Year
  Sex: Male

DRUGS (12)
  1. RITUXAN [Suspect]
     Indication: CHRONIC LYMPHOCYTIC LEUKAEMIA
     Dosage: 100 MG, UNK
     Route: 042
  2. PENTOSTATIN [Suspect]
     Indication: CHRONIC LYMPHOCYTIC LEUKAEMIA
     Dosage: 4 MG/M2, UNK
     Route: 042
  3. CYCLOPHOSPHAMIDE [Suspect]
     Indication: CHRONIC LYMPHOCYTIC LEUKAEMIA
     Dosage: 600 MG/M2, UNK
     Route: 042
  4. FLUIDS (UNK INGREDIENTS) [Concomitant]
     Indication: PREMEDICATION
  5. IV HYDRATION (UNK INGREDIENTS) [Concomitant]
     Indication: PREMEDICATION
     Dosage: 750 ML, UNK
  6. ANTI NAUSEA MEDICINE UNKOWN NAME [Concomitant]
     Indication: NAUSEA
  7. ANTI NAUSEA MEDICINE UNKOWN NAME [Concomitant]
     Indication: VOMITING
  8. ACETAMINOPHEN [Concomitant]
     Indication: PREMEDICATION
  9. DIPHENHYDRAMINE HCL [Concomitant]
     Indication: PREMEDICATION
  10. ALLOPURINOL [Concomitant]
     Indication: DRUG USE FOR UNKNOWN INDICATION
  11. TRIMETHOPRIM + SULFAMETHOXAZOLE [Concomitant]
     Indication: PROPHYLAXIS
  12. NEUPOGEN [Concomitant]
     Indication: DRUG USE FOR UNKNOWN INDICATION
     Dosage: 5 A?G/KG, UNK
     Route: 058

REACTIONS (3)
  - HYPERTENSION [None]
  - RENAL FAILURE [None]
  - TRANSIENT ISCHAEMIC ATTACK [None]
